FAERS Safety Report 10338214 (Version 3)
Quarter: 2014Q3

REPORT INFORMATION
  Report Type: Spontaneous
  Country: US (occurrence: US)
  Receive Date: 20140724
  Receipt Date: 20140818
  Transmission Date: 20150326
  Serious: No
  Sender: FDA-Public Use
  Company Number: US-PFIZER INC-2014205417

PATIENT
  Age: 66 Year
  Sex: Male
  Weight: 81.63 kg

DRUGS (3)
  1. XALATAN [Suspect]
     Active Substance: LATANOPROST
     Indication: GLAUCOMA
     Dosage: 1 GTT, 1X/DAY (ONE DROP GTT OU QHS) DAILY
     Route: 047
     Dates: start: 2013
  2. XALATAN [Suspect]
     Active Substance: LATANOPROST
  3. XALATAN [Suspect]
     Active Substance: LATANOPROST
     Indication: OCULAR HYPERTENSION
     Dosage: UNK
     Route: 031

REACTIONS (2)
  - Periorbital contusion [Unknown]
  - Blepharal pigmentation [Unknown]
